FAERS Safety Report 4320135-1 (Version None)
Quarter: 2004Q1

REPORT INFORMATION
  Report Type: 
  Country: None (occurrence: None)
  Receive Date: 20040317
  Receipt Date: 20040303
  Transmission Date: 20041129
  Serious: Yes (Hospitalization, Other)
  Sender: FDA-Public Use
  Company Number: HQWYE618308MAR04

PATIENT
  Age: 73 Year
  Sex: Male

DRUGS (10)
  1. EFFEXOR [Suspect]
     Indication: DEPRESSION
     Dosage: 150 MG 1X PER 1 DAY, ORAL
     Route: 048
     Dates: start: 20021027
  2. LITHIOFOR (LITHIUM, ) [Suspect]
     Indication: DEPRESSION
     Dosage: 990 MG 1X PER 1 DAY; ORAL
     Route: 048
     Dates: start: 20021027
  3. RISPERDAL [Suspect]
     Indication: DEPRESSION
     Dosage: 0.5 MG 1X PER 1 DAY; ORAL
     Route: 048
     Dates: start: 20021027, end: 20031024
  4. RISPERDAL [Suspect]
     Dosage: 0.25 MG 2X PER 1 DAY; UNKNOWN
     Route: 065
     Dates: start: 20031025, end: 20031027
  5. LORAZEPAM [Suspect]
     Dosage: 0.5 MG 1X PER 1 DAY; ORAL
     Route: 048
     Dates: start: 20031119
  6. ZYPREXA [Suspect]
     Dosage: 2.5 MG 1X PER 1 DAY; ORAL
     Route: 048
     Dates: start: 20031112, end: 20040110
  7. ZYPREXA [Suspect]
     Dosage: 7.5 MG 1X PER 1 DAY; ORAL
     Route: 048
     Dates: start: 20041111, end: 20040112
  8. ZYPREXA [Suspect]
     Dosage: 2.5 MG 1X PER 1 DAY; ORAL
     Route: 048
     Dates: start: 20040113
  9. PANTOZOL (PANTOPRAZOLE) [Concomitant]
  10. PANADOL (PARACETAMOL) [Concomitant]

REACTIONS (8)
  - BLOOD CREATINE PHOSPHOKINASE INCREASED [None]
  - DRUG INTERACTION [None]
  - LIP DRY [None]
  - MUCOSAL DRYNESS [None]
  - PARKINSONISM [None]
  - SEBORRHOEA [None]
  - SEDATION [None]
  - SKIN TURGOR DECREASED [None]
